FAERS Safety Report 21072778 (Version 1)
Quarter: 2022Q3

REPORT INFORMATION
  Report Type: Spontaneous
  Country: US (occurrence: US)
  Receive Date: 20220712
  Receipt Date: 20220712
  Transmission Date: 20221026
  Serious: Yes (Other)
  Sender: FDA-Public Use
  Company Number: US-009507513-2207USA003546

PATIENT
  Sex: Female

DRUGS (1)
  1. SIVEXTRO [Suspect]
     Active Substance: TEDIZOLID PHOSPHATE
     Indication: Infection
     Dosage: 200 MILLIGRAM
     Route: 048
     Dates: start: 2020

REACTIONS (5)
  - Autoimmune disorder [Unknown]
  - Type 2 diabetes mellitus [Unknown]
  - Localised infection [Unknown]
  - Product availability issue [Unknown]
  - Product supply issue [Unknown]
